FAERS Safety Report 15705941 (Version 1)
Quarter: 2018Q4

REPORT INFORMATION
  Report Type: Spontaneous
  Country: GB (occurrence: GB)
  Receive Date: 20181210
  Receipt Date: 20181210
  Transmission Date: 20190205
  Serious: Yes (Other)
  Sender: FDA-Public Use
  Company Number: GB-TEVA-2018-GB-984418

PATIENT
  Age: 67 Year
  Sex: Male
  Weight: 103.41 kg

DRUGS (6)
  1. GENERICS UK TELMISARTAN [Concomitant]
  2. LANSOPRAZOLE. [Concomitant]
     Active Substance: LANSOPRAZOLE
  3. RANITIDINE. [Suspect]
     Active Substance: RANITIDINE
     Indication: ERUCTATION
     Route: 048
  4. GABAPENTIN. [Concomitant]
     Active Substance: GABAPENTIN
  5. ALLOPURINOL. [Concomitant]
     Active Substance: ALLOPURINOL
  6. SIMVASTATIN. [Concomitant]
     Active Substance: SIMVASTATIN

REACTIONS (2)
  - Chest pain [Unknown]
  - Chest discomfort [Unknown]

NARRATIVE: CASE EVENT DATE: 20181101
